FAERS Safety Report 8986450 (Version 3)
Quarter: 2014Q1

REPORT INFORMATION
  Report Type: Report from Study
  Country: BE (occurrence: BE)
  Receive Date: 20121226
  Receipt Date: 20140118
  Transmission Date: 20141002
  Serious: Yes (Other)
  Sender: FDA-Public Use
  Company Number: BE-ROCHE-1174257

PATIENT
  Age: 78 Year
  Sex: Female

DRUGS (5)
  1. RANIBIZUMAB [Suspect]
     Indication: PRODUCT USED FOR UNKNOWN INDICATION
     Dosage: LAST DOSE TAKEN: 12/NOV/2012
     Route: 050
     Dates: start: 20120820
  2. RANIBIZUMAB [Suspect]
     Route: 050
     Dates: start: 20121112
  3. INDERAL [Concomitant]
     Route: 065
     Dates: start: 2002
  4. CARDIOASPIRIN [Concomitant]
     Route: 065
     Dates: start: 2006
  5. EUTHYROX [Concomitant]
     Route: 065
     Dates: start: 2008

REACTIONS (2)
  - Deep vein thrombosis [Not Recovered/Not Resolved]
  - Cholelithiasis [Unknown]
